FAERS Safety Report 24019682 (Version 1)
Quarter: 2024Q2

REPORT INFORMATION
  Report Type: Spontaneous
  Country: US (occurrence: US)
  Receive Date: 20240627
  Receipt Date: 20240627
  Transmission Date: 20240715
  Serious: Yes (Hospitalization, Other)
  Sender: FDA-Public Use
  Company Number: US-FreseniusKabi-FK202410033

PATIENT
  Age: 81 Year
  Sex: Male

DRUGS (1)
  1. HYDRALAZINE [Suspect]
     Active Substance: HYDRALAZINE HYDROCHLORIDE
     Indication: Hypertension
     Dosage: RECENT INITIATION (3 MONTHS PRIOR TO PRESENTATION)

REACTIONS (2)
  - Pleuropericarditis [Recovered/Resolved]
  - Eosinophilic pleural effusion [Recovered/Resolved]
